FAERS Safety Report 4640607-X (Version None)
Quarter: 2005Q2

REPORT INFORMATION
  Report Type: 
  Country: None (occurrence: None)
  Receive Date: 20050419
  Receipt Date: 20050411
  Transmission Date: 20051028
  Serious: Yes (Life-Threatening)
  Sender: FDA-Public Use
  Company Number: 2005AC00571

PATIENT
  Age: 18 Year
  Sex: Female

DRUGS (2)
  1. PROPOFOL [Suspect]
     Indication: AGITATION
     Dosage: 400 MG IV
     Route: 042
  2. REMIFENTANIL [Suspect]
     Indication: AGITATION
     Dosage: 2.7 MG IV
     Route: 042

REACTIONS (5)
  - APNOEA [None]
  - BRADYCARDIA [None]
  - CATHETER RELATED COMPLICATION [None]
  - HYPOTENSION [None]
  - MULTIPLE DRUG OVERDOSE ACCIDENTAL [None]
